FAERS Safety Report 11251070 (Version 1)
Quarter: 2015Q3

REPORT INFORMATION
  Report Type: Spontaneous
  Country: US (occurrence: US)
  Receive Date: 20150708
  Receipt Date: 20150708
  Transmission Date: 20151125
  Serious: No
  Sender: FDA-Public Use
  Company Number: US-ELI_LILLY_AND_COMPANY-US201108002797

PATIENT
  Age: 44 Year
  Sex: Male

DRUGS (1)
  1. PROZAC [Suspect]
     Active Substance: FLUOXETINE HYDROCHLORIDE
     Indication: DEPRESSION
     Dosage: 20 MG, QD
     Dates: start: 20110602, end: 20110603

REACTIONS (4)
  - Cheilitis [Unknown]
  - Hypersensitivity [Unknown]
  - Lip swelling [Unknown]
  - Lip pain [Unknown]

NARRATIVE: CASE EVENT DATE: 20110603
